FAERS Safety Report 12528351 (Version 2)
Quarter: 2016Q3

REPORT INFORMATION
  Report Type: Spontaneous
  Country: GB (occurrence: GB)
  Receive Date: 20160705
  Receipt Date: 20160715
  Transmission Date: 20161109
  Serious: Yes (Hospitalization, Other)
  Sender: FDA-Public Use
  Company Number: PHHY2016GB088697

PATIENT
  Age: 33 Year
  Sex: Female

DRUGS (12)
  1. ETHANOL [Concomitant]
     Active Substance: ALCOHOL
     Indication: PRODUCT USED FOR UNKNOWN INDICATION
     Route: 065
  2. STELAZINE [Concomitant]
     Active Substance: TRIFLUOPERAZINE HYDROCHLORIDE
     Indication: PRODUCT USED FOR UNKNOWN INDICATION
     Route: 065
     Dates: start: 20030616
  3. CITALOPRAM [Concomitant]
     Active Substance: CITALOPRAM HYDROBROMIDE
     Indication: PRODUCT USED FOR UNKNOWN INDICATION
     Route: 065
     Dates: start: 200509
  4. ZYBAN [Concomitant]
     Active Substance: BUPROPION HYDROCHLORIDE
     Indication: EX-TOBACCO USER
     Route: 065
     Dates: start: 200710
  5. NICOTINE. [Concomitant]
     Active Substance: NICOTINE
     Indication: THERAPEUTIC PROCEDURE
     Route: 065
  6. PAROXETINE HYDROCHLORIDE. [Suspect]
     Active Substance: PAROXETINE HYDROCHLORIDE
     Indication: DEPRESSION
     Route: 065
     Dates: start: 19981112, end: 200402
  7. PAROXETINE HYDROCHLORIDE. [Suspect]
     Active Substance: PAROXETINE HYDROCHLORIDE
     Dosage: 20 MG, QD
     Route: 065
     Dates: start: 20020707, end: 20020708
  8. PAROXETINE HYDROCHLORIDE. [Suspect]
     Active Substance: PAROXETINE HYDROCHLORIDE
     Route: 048
     Dates: start: 20030901
  9. SEROXAT [Suspect]
     Active Substance: PAROXETINE HYDROCHLORIDE
     Indication: DEPRESSION
     Route: 065
     Dates: start: 20030521, end: 200603
  10. FLUOXETINE [Concomitant]
     Active Substance: FLUOXETINE HYDROCHLORIDE
     Indication: PRODUCT USED FOR UNKNOWN INDICATION
     Route: 065
     Dates: start: 200509
  11. LOFEPRAMINE [Concomitant]
     Active Substance: LOFEPRAMINE
     Indication: PRODUCT USED FOR UNKNOWN INDICATION
     Route: 065
     Dates: start: 200509
  12. SEROXAT [Suspect]
     Active Substance: PAROXETINE HYDROCHLORIDE
     Route: 065
     Dates: start: 20030521, end: 200603

REACTIONS (37)
  - Abnormal dreams [Unknown]
  - Self-injurious ideation [Unknown]
  - Mood swings [Unknown]
  - Balance disorder [Unknown]
  - Panic attack [Unknown]
  - Vomiting [Unknown]
  - Decreased appetite [Unknown]
  - Anhedonia [Unknown]
  - Dyspnoea [Unknown]
  - Eye swelling [Unknown]
  - Suicidal ideation [Unknown]
  - Sleep disorder [Unknown]
  - Tearfulness [Unknown]
  - Paraesthesia [Unknown]
  - Withdrawal syndrome [Unknown]
  - Nausea [Unknown]
  - Photosensitivity reaction [Unknown]
  - Insomnia [Unknown]
  - Deafness unilateral [Unknown]
  - Depressed mood [Unknown]
  - Dizziness [Unknown]
  - Swelling face [Unknown]
  - Fatigue [Unknown]
  - Confusional state [Unknown]
  - Treatment noncompliance [Unknown]
  - Depression [Unknown]
  - Feeling abnormal [Unknown]
  - Restlessness [Unknown]
  - Hyperhidrosis [Unknown]
  - Grief reaction [Unknown]
  - Anxiety [Unknown]
  - Asthenia [Unknown]
  - Affective disorder [Unknown]
  - Libido decreased [Unknown]
  - Dry mouth [Unknown]
  - Agitation [Unknown]
  - Tremor [Unknown]

NARRATIVE: CASE EVENT DATE: 199812
